FAERS Safety Report 12888307 (Version 1)
Quarter: 2016Q4

REPORT INFORMATION
  Report Type: Spontaneous
  Country: IT (occurrence: IT)
  Receive Date: 20161027
  Receipt Date: 20161027
  Transmission Date: 20170207
  Serious: Yes (Other)
  Sender: FDA-Public Use
  Company Number: IT-SUN PHARMACEUTICAL INDUSTRIES LTD-2016RR-126696

PATIENT
  Age: 61 Year
  Sex: Female

DRUGS (7)
  1. METHIMAZOLE. [Interacting]
     Active Substance: METHIMAZOLE
     Dosage: REDUCING THE DOSE BY 50% EVERY 20 DAYS
     Route: 065
  2. METHIMAZOLE. [Suspect]
     Active Substance: METHIMAZOLE
     Indication: ENDOCRINE OPHTHALMOPATHY
     Dosage: REDUCING THE DOSE BY 50% EVERY 20 DAYS
     Route: 065
  3. PARACETAMOL [Interacting]
     Active Substance: ACETAMINOPHEN
     Indication: BACK PAIN
     Dosage: 4 G, DAILY
     Route: 065
  4. METHIMAZOLE. [Interacting]
     Active Substance: METHIMAZOLE
     Indication: BASEDOW^S DISEASE
     Dosage: REDUCING THE DOSE BY 50% EVERY 20 DAYS
     Route: 065
  5. METHIMAZOLE. [Interacting]
     Active Substance: METHIMAZOLE
     Dosage: 20 MG, DAILY
     Route: 065
  6. METHIMAZOLE. [Interacting]
     Active Substance: METHIMAZOLE
     Dosage: REDUCING THE DOSE BY 50% EVERY 20 DAYS
     Route: 065
  7. METHIMAZOLE. [Interacting]
     Active Substance: METHIMAZOLE
     Dosage: 20 MG, DAILY
     Route: 065

REACTIONS (2)
  - Drug-induced liver injury [Recovered/Resolved]
  - Drug interaction [Recovered/Resolved]
